FAERS Safety Report 7211594-5 (Version None)
Quarter: 2010Q4

REPORT INFORMATION
  Report Type: 
  Country: None (occurrence: None)
  Receive Date: 20101228
  Receipt Date: 20101213
  Transmission Date: 20110411
  Serious: Yes (Other)
  Sender: FDA-Public Use
  Company Number: 012309

PATIENT
  Age: 7 Year
  Sex: Male

DRUGS (5)
  1. BUSULFEX(BUSULFAN) SOLUTION FOR INFUSION [Suspect]
     Indication: STEM CELL TRANSPLANT
     Dosage: 4 MG/KG, DAILY DOSE,
  2. CYCLOPHOSPHAMIDE [Concomitant]
  3. HYDROXYUREA [Concomitant]
  4. AZATHIOPRINE [Concomitant]
  5. FLUDARABINE PHOSPHATE [Concomitant]

REACTIONS (3)
  - DEEP VEIN THROMBOSIS [None]
  - HAEMORRHAGE INTRACRANIAL [None]
  - HAEMORRHAGIC DIATHESIS [None]
